FAERS Safety Report 5173864-4 (Version None)
Quarter: 2006Q4

REPORT INFORMATION
  Report Type: 
  Country: None (occurrence: None)
  Receive Date: 20061214
  Receipt Date: 20060929
  Transmission Date: 20070319
  Serious: No
  Sender: FDA-Public Use
  Company Number: US-AMGEN-US195432

PATIENT
  Sex: Female

DRUGS (3)
  1. ENBREL [Suspect]
     Indication: RHEUMATOID ARTHRITIS
     Route: 058
     Dates: start: 20060917
  2. ARAVA [Concomitant]
     Route: 065
     Dates: start: 20040101
  3. SULFASALAZINE [Concomitant]
     Route: 065

REACTIONS (1)
  - INJECTION SITE SWELLING [None]
